FAERS Safety Report 19353450 (Version 2)
Quarter: 2021Q2

REPORT INFORMATION
  Report Type: Report from Study
  Country: None (occurrence: US)
  Receive Date: 20210601
  Receipt Date: 20210609
  Transmission Date: 20210717
  Serious: Yes (Hospitalization, Other)
  Sender: FDA-Public Use
  Company Number: US-ABBVIE-21K-163-3906566-00

PATIENT
  Sex: Female

DRUGS (25)
  1. HUMIRA [Suspect]
     Active Substance: ADALIMUMAB
     Route: 058
     Dates: start: 201807, end: 201908
  2. CYMBALTA [Concomitant]
     Active Substance: DULOXETINE HYDROCHLORIDE
     Indication: NEUROPATHY PERIPHERAL
  3. FOLTANX [Concomitant]
     Indication: NEUROPATHY PERIPHERAL
  4. NOVOLAX [Concomitant]
     Indication: LATENT AUTOIMMUNE DIABETES IN ADULTS
  5. LEVOTHYROXINE. [Concomitant]
     Active Substance: LEVOTHYROXINE
     Indication: HYPOTHYROIDISM
  6. CLONIDINE. [Concomitant]
     Active Substance: CLONIDINE
     Indication: HYPERHIDROSIS
  7. CHLORTHALIDONE. [Concomitant]
     Active Substance: CHLORTHALIDONE
     Indication: SWELLING
  8. IBUPROFEN. [Concomitant]
     Active Substance: IBUPROFEN
     Indication: SWELLING
  9. HUMIRA [Suspect]
     Active Substance: ADALIMUMAB
     Indication: RHEUMATOID ARTHRITIS
     Route: 058
     Dates: start: 2017, end: 201805
  10. AMITRIPTYLINE [Concomitant]
     Active Substance: AMITRIPTYLINE
     Indication: NEUROPATHY PERIPHERAL
  11. PROTONIX [Concomitant]
     Active Substance: PANTOPRAZOLE SODIUM
     Indication: GASTROOESOPHAGEAL REFLUX DISEASE
  12. JUNEL [Concomitant]
     Active Substance: ETHINYL ESTRADIOL\NORETHINDRONE ACETATE
     Indication: ORAL CONTRACEPTION
  13. PFIZER?BIONTECH COVID?19 VACCINE [Concomitant]
     Active Substance: TOZINAMERAN
     Route: 030
     Dates: start: 20210423, end: 20210423
  14. GABAPENTIN. [Concomitant]
     Active Substance: GABAPENTIN
     Indication: NEUROPATHY PERIPHERAL
  15. LISINOPRIL. [Concomitant]
     Active Substance: LISINOPRIL
     Indication: HYPERTENSION
  16. METHOCARBAMOL. [Concomitant]
     Active Substance: METHOCARBAMOL
     Indication: SPINAL COLUMN INJURY
  17. HUMIRA [Suspect]
     Active Substance: ADALIMUMAB
     Route: 058
     Dates: start: 201910
  18. METHOCARBAMOL. [Concomitant]
     Active Substance: METHOCARBAMOL
     Indication: MUSCLE RELAXANT THERAPY
  19. CHLORTHALIDONE. [Concomitant]
     Active Substance: CHLORTHALIDONE
     Indication: DIURETIC THERAPY
  20. ZOFRAN [Concomitant]
     Active Substance: ONDANSETRON HYDROCHLORIDE
     Indication: NAUSEA
  21. OXYCODONE [Concomitant]
     Active Substance: OXYCODONE
     Indication: PAIN
  22. PFIZER?BIONTECH COVID?19 VACCINE [Concomitant]
     Active Substance: TOZINAMERAN
     Indication: COVID-19 IMMUNISATION
     Route: 030
     Dates: start: 20210319, end: 20210319
  23. BELBUCA [Concomitant]
     Active Substance: BUPRENORPHINE HYDROCHLORIDE
     Indication: PAIN
  24. CRESTOR [Concomitant]
     Active Substance: ROSUVASTATIN CALCIUM
     Indication: BLOOD CHOLESTEROL INCREASED
  25. IBUPROFEN. [Concomitant]
     Active Substance: IBUPROFEN
     Indication: PAIN

REACTIONS (29)
  - Glycosylated haemoglobin increased [Unknown]
  - Mood altered [Not Recovered/Not Resolved]
  - Confusional state [Not Recovered/Not Resolved]
  - Arthralgia [Not Recovered/Not Resolved]
  - Aspiration [Not Recovered/Not Resolved]
  - Anxiety [Not Recovered/Not Resolved]
  - Fall [Recovered/Resolved]
  - Condition aggravated [Not Recovered/Not Resolved]
  - Muscle disorder [Not Recovered/Not Resolved]
  - Hyperhidrosis [Recovered/Resolved]
  - Oesophageal stenosis [Recovered/Resolved]
  - Disturbance in attention [Not Recovered/Not Resolved]
  - Balance disorder [Not Recovered/Not Resolved]
  - Diabetes mellitus [Unknown]
  - Speech disorder [Not Recovered/Not Resolved]
  - Barrett^s oesophagus [Not Recovered/Not Resolved]
  - Pancreatic failure [Not Recovered/Not Resolved]
  - Cognitive disorder [Not Recovered/Not Resolved]
  - Brain injury [Not Recovered/Not Resolved]
  - Reading disorder [Not Recovered/Not Resolved]
  - Weight decreased [Unknown]
  - Depression [Not Recovered/Not Resolved]
  - Bone pain [Recovered/Resolved]
  - Diarrhoea [Recovered/Resolved]
  - Hiatus hernia [Recovered/Resolved]
  - Joint injury [Not Recovered/Not Resolved]
  - Pancreatitis [Recovered/Resolved]
  - Memory impairment [Not Recovered/Not Resolved]
  - Abnormal faeces [Unknown]

NARRATIVE: CASE EVENT DATE: 2017
